FAERS Safety Report 6657937-2 (Version None)
Quarter: 2010Q1

REPORT INFORMATION
  Report Type: 
  Country: None (occurrence: None)
  Receive Date: 20100330
  Receipt Date: 20100218
  Transmission Date: 20100710
  Serious: No
  Sender: FDA-Public Use
  Company Number: US-JNJFOC-20100209562

PATIENT
  Sex: Male

DRUGS (7)
  1. INVEGA SUSTENNA [Suspect]
     Indication: SCHIZOAFFECTIVE DISORDER
     Route: 030
  2. RISPERDAL CONSTA [Suspect]
     Indication: SCHIZOAFFECTIVE DISORDER
     Route: 030
  3. INVEGA [Suspect]
     Indication: SCHIZOAFFECTIVE DISORDER
  4. BENADRYL [Concomitant]
  5. WELLBUTRIN [Concomitant]
     Indication: DEPRESSION
  6. DEPAKOTE [Concomitant]
     Indication: MOOD SWINGS
  7. AMBIEN [Concomitant]
     Indication: SLEEP DISORDER

REACTIONS (5)
  - DYSKINESIA [None]
  - DYSPHEMIA [None]
  - INSOMNIA [None]
  - TREMOR [None]
  - WEIGHT DECREASED [None]
